FAERS Safety Report 19268643 (Version 2)
Quarter: 2021Q3

REPORT INFORMATION
  Report Type: Spontaneous
  Country: US (occurrence: US)
  Receive Date: 20210517
  Receipt Date: 20210721
  Transmission Date: 20211014
  Serious: Yes (Hospitalization)
  Sender: FDA-Public Use
  Company Number: US-TEVA-2021-US-1910149

PATIENT
  Sex: Female

DRUGS (9)
  1. FLECAINIDE [Suspect]
     Active Substance: FLECAINIDE
     Indication: SUPRAVENTRICULAR TACHYCARDIA
     Dosage: 300 MILLIGRAM DAILY; RECEIVED FROM 19 6/7 GESTATIONAL WEEK TILL DELIVERY
     Route: 064
  2. AMIODARONE [Suspect]
     Active Substance: AMIODARONE
     Indication: SUPRAVENTRICULAR TACHYCARDIA
     Dosage: 600 MILLIGRAM DAILY; RECEIVED FROM 22 3/7 GESTATION WEEK FOR 7DAYS
     Route: 064
  3. SOTALOL. [Suspect]
     Active Substance: SOTALOL
     Indication: SUPRAVENTRICULAR TACHYCARDIA
     Dosage: 320 MILLIGRAM DAILY; RECEIVED FROM 20 3/7 GESTATIONAL WEEK TO 20 5/7
     Route: 064
  4. SOTALOL. [Suspect]
     Active Substance: SOTALOL
     Dosage: 400 MILLIGRAM DAILY; RECEIVED FROM 20 5/7 GESTATIONAL WEEK TO 22 3/7
     Route: 064
  5. METOPROLOL. [Suspect]
     Active Substance: METOPROLOL
     Indication: SUPRAVENTRICULAR TACHYCARDIA
     Dosage: 100 MILLIGRAM DAILY; RECEIVED FROM 22 3/7 GESTATION WEEK TO DELIVERY
     Route: 064
  6. AMIODARONE [Suspect]
     Active Substance: AMIODARONE
     Dosage: 800 MILLIGRAM DAILY; RECEIVED FROM 22 3/7 GESTATION WEEK TO DELIVERY
     Route: 064
  7. DIGOXIN. [Suspect]
     Active Substance: DIGOXIN
     Indication: SUPRAVENTRICULAR TACHYCARDIA
     Dosage: LOADING DOSE 500UG , RECEIVED THREE DOSES
     Route: 064
  8. DIGOXIN. [Suspect]
     Active Substance: DIGOXIN
     Dosage: 500 MICROGRAM DAILY; MAINTENANCE DOSE, RECEIVED BETWEEN 19 3/7 GESTATIONAL WEEK AND 20 2/7
     Route: 064
  9. AMIODARONE [Suspect]
     Active Substance: AMIODARONE
     Indication: SUPRAVENTRICULAR TACHYCARDIA
     Dosage: RECEIVED ONCE AT GESTATION 22 3/7 ONCE
     Route: 064

REACTIONS (3)
  - Drug ineffective [Unknown]
  - Foetal exposure during pregnancy [Unknown]
  - Premature baby [Unknown]
